FAERS Safety Report 7272450-X (Version None)
Quarter: 2011Q1

REPORT INFORMATION
  Report Type: 
  Country: None (occurrence: None)
  Receive Date: 20110203
  Receipt Date: 20110122
  Transmission Date: 20110831
  Serious: Yes (Hospitalization, Other)
  Sender: FDA-Public Use
  Company Number: US-ROCHE-642456

PATIENT
  Sex: Female

DRUGS (19)
  1. FERROUS SULFATE TAB [Concomitant]
     Dates: start: 20070801
  2. MYCOPHENOLATE MOFETIL [Suspect]
     Route: 048
     Dates: start: 20070315
  3. FERROUS SULFATE TAB [Concomitant]
     Dates: start: 20080603
  4. CLOPIDOGREL [Concomitant]
     Dates: start: 20080610
  5. WARFARIN SODIUM [Concomitant]
     Dates: start: 20070223
  6. CARVEDILOL [Concomitant]
     Dates: start: 20090107
  7. FUROSEMIDE [Concomitant]
     Dates: start: 20070801
  8. PREDNISONE [Suspect]
     Route: 048
     Dates: start: 20070318
  9. PREDNISONE [Suspect]
     Route: 048
     Dates: start: 20070330
  10. WARFARIN SODIUM [Concomitant]
     Dates: start: 20080903
  11. CLOPIDOGREL [Concomitant]
     Dates: start: 20070519
  12. BELATACEPT [Suspect]
     Route: 042
     Dates: start: 20070315
  13. INSULIN [Concomitant]
     Dates: start: 20070418
  14. ASPIRIN [Concomitant]
     Dates: start: 20070621
  15. CARDIZEM [Concomitant]
     Dates: start: 20080729
  16. CARDIZEM [Concomitant]
     Dates: start: 20090216
  17. PREDNISONE [Suspect]
     Route: 048
     Dates: start: 20090330
  18. INSULIN [Concomitant]
     Dates: start: 20070318
  19. ROSUVASTATIN CALCIUM [Concomitant]
     Dates: start: 20070322

REACTIONS (6)
  - UPPER RESPIRATORY TRACT INFECTION [None]
  - BASAL CELL CARCINOMA [None]
  - ANAEMIA [None]
  - COAGULOPATHY [None]
  - CLOSTRIDIAL INFECTION [None]
  - SQUAMOUS CELL CARCINOMA OF SKIN [None]
